FAERS Safety Report 5373485-4 (Version None)
Quarter: 2007Q2

REPORT INFORMATION
  Report Type: 
  Country: None (occurrence: None)
  Receive Date: 20070626
  Receipt Date: 20070626
  Transmission Date: 20071010
  Serious: Yes (Hospitalization)
  Sender: FDA-Public Use
  Company Number: None

PATIENT
  Sex: Female
  Weight: 68.1 kg

DRUGS (1)
  1. TEMOZOLOMIDE [Suspect]

REACTIONS (2)
  - PNEUMONIA [None]
  - SINUSITIS [None]
